FAERS Safety Report 5469443-1 (Version None)
Quarter: 2007Q3

REPORT INFORMATION
  Report Type: 
  Country: None (occurrence: None)
  Receive Date: 20070927
  Receipt Date: 20070918
  Transmission Date: 20080115
  Serious: Yes (Other)
  Sender: FDA-Public Use
  Company Number: FR-JNJFOC-20070903774

PATIENT
  Age: 52 Year
  Sex: Male

DRUGS (8)
  1. RISPERDAL [Suspect]
     Indication: DELUSION
     Route: 048
  2. DEPAKENE [Concomitant]
  3. KARDEGIC [Concomitant]
  4. SPECIAFOLDINE [Concomitant]
  5. INIPOMP [Concomitant]
  6. NICOBION 500 [Concomitant]
  7. THIAMINE HCL [Concomitant]
  8. VITAMIN B6 [Concomitant]

REACTIONS (1)
  - THROMBOCYTOPENIA [None]
